FAERS Safety Report 6568233-6 (Version None)
Quarter: 2010Q1

REPORT INFORMATION
  Report Type: 
  Country: None (occurrence: None)
  Receive Date: 20100203
  Receipt Date: 20100125
  Transmission Date: 20100710
  Serious: Yes (Other)
  Sender: FDA-Public Use
  Company Number: US-ELI_LILLY_AND_COMPANY-US200809005636

PATIENT
  Sex: Male

DRUGS (3)
  1. CIALIS [Suspect]
     Indication: ERECTILE DYSFUNCTION
     Dosage: 20 MG, AS NEEDED
     Dates: start: 20070101, end: 20090701
  2. CIALIS [Suspect]
     Dosage: 20 MG, AS NEEDED
     Dates: start: 20100101
  3. INSULIN [Concomitant]
     Indication: DIABETES MELLITUS

REACTIONS (2)
  - DRUG INEFFECTIVE [None]
  - PROSTATE CANCER [None]
